FAERS Safety Report 9879996 (Version 1)
Quarter: 2014Q1

REPORT INFORMATION
  Report Type: Spontaneous
  Country: US (occurrence: US)
  Receive Date: 20140207
  Receipt Date: 20140207
  Transmission Date: 20141002
  Serious: No
  Sender: FDA-Public Use
  Company Number: US-009507513-1401USA014504

PATIENT
  Sex: Female

DRUGS (1)
  1. DULERA [Suspect]
     Dosage: 1 PUFF TWICE A DAY
     Route: 055
     Dates: start: 201303

REACTIONS (3)
  - Underdose [Unknown]
  - Product container issue [Unknown]
  - No adverse event [Unknown]
